FAERS Safety Report 14412350 (Version 1)
Quarter: 2018Q1

REPORT INFORMATION
  Report Type: Spontaneous
  Country: US (occurrence: US)
  Receive Date: 20180119
  Receipt Date: 20180119
  Transmission Date: 20180509
  Serious: Yes (Other)
  Sender: FDA-Public Use
  Company Number: US-IMPAX LABORATORIES, INC-2018-IPXL-00102

PATIENT
  Age: 5 Year
  Sex: Male

DRUGS (1)
  1. DANTROLENE SODIUM. [Suspect]
     Active Substance: DANTROLENE SODIUM
     Indication: HYPERTHERMIA MALIGNANT
     Dosage: FOUR DOSES OF 60 MG
     Route: 042

REACTIONS (7)
  - Respiratory failure [Recovering/Resolving]
  - Compartment syndrome [Recovering/Resolving]
  - Shock [Recovering/Resolving]
  - Hepatic failure [Recovering/Resolving]
  - Disseminated intravascular coagulation [Recovering/Resolving]
  - Pulmonary haemorrhage [Recovering/Resolving]
  - Cerebral infarction [Unknown]
